FAERS Safety Report 16261371 (Version 2)
Quarter: 2019Q3

REPORT INFORMATION
  Report Type: Spontaneous
  Country: DE (occurrence: DE)
  Receive Date: 20190501
  Receipt Date: 20190809
  Transmission Date: 20191004
  Serious: Yes (Hospitalization, Other)
  Sender: FDA-Public Use
  Company Number: DE-SA-2019SA116635

PATIENT
  Age: 51 Year
  Sex: Female
  Weight: 71 kg

DRUGS (4)
  1. LEVODOPA [Concomitant]
     Active Substance: LEVODOPA
     Indication: RESTLESS LEGS SYNDROME
     Dosage: 3 DF, QD
     Route: 048
  2. AUBAGIO [Suspect]
     Active Substance: TERIFLUNOMIDE
     Route: 048
  3. FAMPYRA [Concomitant]
     Active Substance: DALFAMPRIDINE
     Indication: MULTIPLE SCLEROSIS
     Dosage: 2 DF, BID
     Route: 048
  4. FLUOXETINE [Concomitant]
     Active Substance: FLUOXETINE HYDROCHLORIDE
     Indication: DEPRESSION
     Dosage: 1 DF, QD
     Route: 048

REACTIONS (33)
  - Pyrexia [Recovered/Resolved]
  - Chronic sinusitis [Recovered/Resolved]
  - Rash generalised [Recovering/Resolving]
  - Muscular weakness [Unknown]
  - Influenza [Unknown]
  - Lung abscess [Recovered/Resolved]
  - Migraine [Unknown]
  - Hyperreflexia [Unknown]
  - Normochromic normocytic anaemia [Recovered/Resolved]
  - Hypokalaemia [Recovered/Resolved]
  - Gait disturbance [Unknown]
  - Sensory disturbance [Unknown]
  - Staphylococcal bacteraemia [Recovered/Resolved]
  - Pneumonia [Recovered/Resolved]
  - Acute disseminated encephalomyelitis [Recovered/Resolved]
  - Fatigue [Unknown]
  - Central venous catheterisation [Unknown]
  - Vestibular neuronitis [Unknown]
  - Rash [Unknown]
  - Pneumonitis [Recovered/Resolved]
  - Depression [Unknown]
  - Bowel movement irregularity [Unknown]
  - Dizziness [Recovered/Resolved]
  - Central nervous system lesion [Recovered/Resolved]
  - Thrombocytosis [Recovered/Resolved]
  - Restless legs syndrome [Unknown]
  - Optic neuritis [Unknown]
  - Hypoaesthesia [Unknown]
  - Phlebitis [Recovered/Resolved]
  - Multiple sclerosis relapse [Unknown]
  - Vision blurred [Unknown]
  - Urge incontinence [Unknown]
  - Urinary incontinence [Unknown]

NARRATIVE: CASE EVENT DATE: 2019
